FAERS Safety Report 13138457 (Version 1)
Quarter: 2017Q1

REPORT INFORMATION
  Report Type: Spontaneous
  Country: IT (occurrence: IT)
  Receive Date: 20170123
  Receipt Date: 20170123
  Transmission Date: 20170428
  Serious: Yes (Other)
  Sender: FDA-Public Use
  Company Number: PHHY2017IT008296

PATIENT
  Age: 51 Year
  Sex: Female

DRUGS (3)
  1. ZOMETA [Suspect]
     Active Substance: ZOLEDRONIC ACID
     Indication: METASTASES TO BONE
     Dosage: 4 MG, CYCLIC
     Route: 042
     Dates: start: 20130401, end: 20161001
  2. CAPECITABINA ACCORD [Concomitant]
     Active Substance: CAPECITABINE
     Indication: BREAST CANCER
     Dosage: UNK
     Route: 065
     Dates: start: 20130401, end: 20140401
  3. CAPECITABINA ACCORD [Concomitant]
     Active Substance: CAPECITABINE
     Dosage: UNK
     Route: 065
     Dates: start: 20151201, end: 20160801

REACTIONS (2)
  - Osteonecrosis of jaw [Not Recovered/Not Resolved]
  - Wound dehiscence [Unknown]

NARRATIVE: CASE EVENT DATE: 20161001
